FAERS Safety Report 9894980 (Version 1)
Quarter: 2014Q1

REPORT INFORMATION
  Report Type: Spontaneous
  Country: US (occurrence: US)
  Receive Date: 20140213
  Receipt Date: 20140213
  Transmission Date: 20141002
  Serious: No
  Sender: FDA-Public Use
  Company Number: US-BRISTOL-MYERS SQUIBB COMPANY-17262064

PATIENT
  Age: 62 Year
  Sex: Female
  Weight: 98.86 kg

DRUGS (19)
  1. ORENCIA FOR INJ [Suspect]
     Indication: RHEUMATOID ARTHRITIS
     Route: 042
  2. ALLEGRA [Concomitant]
  3. CELEBREX [Concomitant]
  4. CYCLOBENZAPRINE [Concomitant]
  5. CYMBALTA [Concomitant]
  6. EXFORGE [Concomitant]
  7. FOLIC ACID [Concomitant]
  8. FORTEO [Concomitant]
  9. GABAPENTIN [Concomitant]
  10. HCTZ [Concomitant]
  11. LEVOTHYROXINE [Concomitant]
  12. METHOTREXATE [Concomitant]
  13. METOPROLOL [Concomitant]
  14. NASONEX [Concomitant]
  15. NUCYNTA [Concomitant]
  16. OMEPRAZOLE [Concomitant]
  17. PLAQUENIL [Concomitant]
  18. PREDNISONE [Concomitant]
  19. VITAMIN D [Concomitant]

REACTIONS (2)
  - Rash [Recovered/Resolved]
  - Pruritus [Recovered/Resolved]
